FAERS Safety Report 10863256 (Version 1)
Quarter: 2015Q1

REPORT INFORMATION
  Report Type: Spontaneous
  Country: DE (occurrence: DE)
  Receive Date: 20150223
  Receipt Date: 20150223
  Transmission Date: 20150721
  Serious: Yes (Hospitalization)
  Sender: FDA-Public Use
  Company Number: DE-009507513-1502DEU001255

PATIENT
  Age: 80 Year
  Sex: Female
  Weight: 44 kg

DRUGS (5)
  1. AMITRIPTYLINE HYDROCHLORIDE. [Concomitant]
     Active Substance: AMITRIPTYLINE HYDROCHLORIDE
     Indication: DEPRESSION
     Dosage: AT THE MORNING ONCE, IN THE EVENING TWICE
     Dates: end: 20150120
  2. INEGY 10 MG/20 MG TABLETTEN [Suspect]
     Active Substance: EZETIMIBE\SIMVASTATIN
     Dosage: TOTAL DAILY DOSE: 10/20 IN THE EVENING
     Route: 048
     Dates: start: 20150203
  3. INEGY 10 MG/20 MG TABLETTEN [Suspect]
     Active Substance: EZETIMIBE\SIMVASTATIN
     Indication: HYPERCHOLESTEROLAEMIA
     Dosage: TOTAL DAILY DOSE: 30/60, AT THE MORNING ONCE, IN THE EVENING TWICE
     Route: 048
     Dates: start: 20150120, end: 20150203
  4. INEGY 10 MG/20 MG TABLETTEN [Suspect]
     Active Substance: EZETIMIBE\SIMVASTATIN
     Dosage: TOTAL DAILY DOSE: 10/20 IN THE EVENING
     Route: 048
     Dates: start: 2000, end: 20150120
  5. AMITRIPTYLINE HYDROCHLORIDE. [Concomitant]
     Active Substance: AMITRIPTYLINE HYDROCHLORIDE
     Dosage: AT THE MORNING ONCE, IN THE EVENING TWICE
     Dates: start: 20150203

REACTIONS (4)
  - Decreased appetite [Recovering/Resolving]
  - Overdose [Unknown]
  - Wrong drug administered [Unknown]
  - Depression [Recovering/Resolving]

NARRATIVE: CASE EVENT DATE: 2015
